APPROVED DRUG PRODUCT: AMPHETAMINE SULFATE
Active Ingredient: AMPHETAMINE SULFATE
Strength: 5MG
Dosage Form/Route: TABLET;ORAL
Application: A212901 | Product #001 | TE Code: AA
Applicant: SENORES PHARMACEUTICALS INC
Approved: May 22, 2020 | RLD: No | RS: No | Type: RX